FAERS Safety Report 5645712-7 (Version None)
Quarter: 2008Q1

REPORT INFORMATION
  Report Type: 
  Country: None (occurrence: None)
  Receive Date: 20080229
  Receipt Date: 20080227
  Transmission Date: 20080703
  Serious: Yes (Hospitalization)
  Sender: FDA-Public Use
  Company Number: US-BOEHRINGER INGELHEIM GMBH, GERMANY-2008-DE-01225GD

PATIENT
  Age: 15 Year
  Sex: Male

DRUGS (8)
  1. RANITIDINE [Suspect]
  2. IPRATROPIUM BROMIDE [Suspect]
     Indication: ASTHMA
     Route: 055
  3. XOLAIR [Suspect]
     Indication: ASTHMA
     Dosage: 3 DOSES (300 MG) DURING A 6-WEEK PERIOD BEFORE ADMISSION
  4. FLUTICASONE/SALMETEROL [Suspect]
     Dosage: 1000/100 (FLUTICASONE/SALMETEROL)
     Route: 055
  5. MONTELUKAST SODIUM [Suspect]
  6. LORATADINE [Suspect]
  7. FLUTICASONE PROPIONATE [Suspect]
     Route: 045
  8. ALBUTEROL [Suspect]
     Indication: ASTHMA
     Route: 055

REACTIONS (2)
  - ASTHMA [None]
  - DRUG INEFFECTIVE [None]
